FAERS Safety Report 6979953-3 (Version None)
Quarter: 2010Q3

REPORT INFORMATION
  Report Type: 
  Country: None (occurrence: None)
  Receive Date: 20100914
  Receipt Date: 20100831
  Transmission Date: 20110219
  Serious: Yes (Other)
  Sender: FDA-Public Use
  Company Number: US-ELI_LILLY_AND_COMPANY-US201009000602

PATIENT
  Age: 63 Year
  Sex: Male

DRUGS (2)
  1. EFFIENT [Suspect]
     Dosage: 60 MG, UNK
     Dates: start: 20100831, end: 20100831
  2. ASPIRIN [Concomitant]

REACTIONS (2)
  - SYNCOPE [None]
  - VOMITING [None]
